FAERS Safety Report 21511997 (Version 5)
Quarter: 2022Q4

REPORT INFORMATION
  Report Type: Report from Study
  Country: US (occurrence: None)
  Receive Date: 20221027
  Receipt Date: 20221115
  Transmission Date: 20230113
  Serious: Yes (Hospitalization)
  Sender: FDA-Public Use
  Company Number: US-ROCHE-3191151

PATIENT
  Age: 67 Year
  Sex: Male
  Weight: 56 kg

DRUGS (23)
  1. VENETOCLAX [Suspect]
     Active Substance: VENETOCLAX
     Indication: Diffuse large B-cell lymphoma
     Dosage: ON 24/SEP/2022, HE RECEIVED MOST RECENT DOSE OF 800 MG OF VENETOCLAX PRIOR TO AE AND SAE??EVERY DAY
     Route: 048
     Dates: start: 20220902
  2. POLATUZUMAB VEDOTIN [Suspect]
     Active Substance: POLATUZUMAB VEDOTIN
     Indication: Diffuse large B-cell lymphoma
     Dosage: ON 20/SEP/2022, HE RECEIVED MOST RECENT DOSE OF 110 MG OF POLATUZUMAB VEDOTIN PRIOR TO AE AND SAE
     Route: 042
     Dates: start: 20220830
  3. RITUXIMAB [Suspect]
     Active Substance: RITUXIMAB
     Indication: Diffuse large B-cell lymphoma
     Dosage: ON 20/SEP/2022, HE RECEIVED MOST RECENT DOSE OF 375 MG OF RITUXIMAB PRIOR TO AE AND SAE?DOSE OF STUD
     Route: 041
     Dates: start: 20220830
  4. PREDNISONE [Suspect]
     Active Substance: PREDNISONE
     Indication: Diffuse large B-cell lymphoma
     Dosage: EVERY DAY 1-5)??ON 24/SEP/2022, HE RECEIVED MOST RECENT DOSE OF 100 MG OF PREDNISONE PRIOR TO AE AND
     Route: 048
     Dates: start: 20220830
  5. CYCLOPHOSPHAMIDE [Suspect]
     Active Substance: CYCLOPHOSPHAMIDE
     Indication: Diffuse large B-cell lymphoma
     Dosage: ON 20/SEP/2022, HE RECEIVED MOST RECENT DOSE OF 1200 MG OF CYCLOPHOSPHAMIDE PRIOR TO AE AND SAE
     Route: 042
     Dates: start: 20220830
  6. DOXORUBICIN [Suspect]
     Active Substance: DOXORUBICIN
     Indication: Diffuse large B-cell lymphoma
     Dosage: ON 20/SEP/2022, HE RECEIVED MOST RECENT DOSE OF 85 MG OF DOXORUBICIN PRIOR TO AE AND SAE?DOSE OF STU
     Route: 042
     Dates: start: 20220830
  7. METOCLOPRAMIDE [Concomitant]
     Active Substance: METOCLOPRAMIDE
     Indication: Nausea
     Route: 048
     Dates: start: 20220906
  8. GEMTESA [Concomitant]
     Active Substance: VIBEGRON
     Indication: Pollakiuria
     Route: 048
     Dates: start: 20220906
  9. NORCO [Concomitant]
     Active Substance: ACETAMINOPHEN\HYDROCODONE BITARTRATE
     Indication: Back pain
     Dosage: 5 MG-325 MG
     Route: 048
  10. PEGFILGRASTIM [Concomitant]
     Active Substance: PEGFILGRASTIM
     Route: 058
     Dates: start: 20220831, end: 20220831
  11. PEGFILGRASTIM [Concomitant]
     Active Substance: PEGFILGRASTIM
     Route: 058
     Dates: start: 20220921, end: 20220921
  12. PEGFILGRASTIM [Concomitant]
     Active Substance: PEGFILGRASTIM
     Route: 058
     Dates: start: 20221012, end: 20221012
  13. PEGFILGRASTIM [Concomitant]
     Active Substance: PEGFILGRASTIM
     Route: 058
     Dates: start: 20221102, end: 20221102
  14. PREDNISONE [Concomitant]
     Active Substance: PREDNISONE
     Route: 048
     Dates: start: 20220830, end: 20220830
  15. PREDNISONE [Concomitant]
     Active Substance: PREDNISONE
     Route: 048
     Dates: start: 20221101, end: 20221101
  16. PREDNISONE [Concomitant]
     Active Substance: PREDNISONE
     Route: 048
     Dates: start: 20220920, end: 20220920
  17. PREDNISONE [Concomitant]
     Active Substance: PREDNISONE
     Route: 048
     Dates: start: 20221011, end: 20221011
  18. BENZONATATE [Concomitant]
     Active Substance: BENZONATATE
     Indication: Cough
     Route: 048
     Dates: start: 20220928, end: 20221004
  19. BENZONATATE [Concomitant]
     Active Substance: BENZONATATE
     Route: 048
     Dates: start: 20221020, end: 20221022
  20. ENOXAPARIN [Concomitant]
     Active Substance: ENOXAPARIN
     Route: 058
     Dates: start: 20220928, end: 20221004
  21. ACETAMINOPHEN\HYDROCODONE [Concomitant]
     Active Substance: ACETAMINOPHEN\HYDROCODONE
     Indication: Pain
     Dosage: HYDROCODONE/ACETAMINOPHEN 7.5 MG-325?MG
     Route: 048
     Dates: start: 20221020, end: 20221022
  22. CODEINE PHOSPHATE\GUAIFENESIN [Concomitant]
     Active Substance: CODEINE PHOSPHATE\GUAIFENESIN
     Indication: Cough
     Route: 048
     Dates: start: 20221020, end: 20221022
  23. VANCOMYCIN [Concomitant]
     Active Substance: VANCOMYCIN
     Indication: Clostridium difficile infection
     Route: 048
     Dates: start: 20221020, end: 20221022

REACTIONS (5)
  - Febrile neutropenia [Not Recovered/Not Resolved]
  - Rhinovirus infection [Not Recovered/Not Resolved]
  - Diverticulitis [Recovered/Resolved]
  - Sepsis [Recovered/Resolved]
  - Anaemia [Recovered/Resolved]

NARRATIVE: CASE EVENT DATE: 20220926
